FAERS Safety Report 26053365 (Version 1)
Quarter: 2025Q4

REPORT INFORMATION
  Report Type: Spontaneous
  Country: EU (occurrence: EU)
  Receive Date: 20251117
  Receipt Date: 20251117
  Transmission Date: 20260118
  Serious: Yes (Death, Other)
  Sender: OTSUKA
  Company Number: EU-AUROBINDO-AUR-APL-2025-056038

PATIENT
  Age: 39 Year
  Sex: Male

DRUGS (2)
  1. ARIPIPRAZOLE [Suspect]
     Active Substance: ARIPIPRAZOLE
     Indication: Schizophrenia
     Dosage: UNK
     Route: 065
  2. CLOTHIAPINE [Suspect]
     Active Substance: CLOTHIAPINE
     Indication: Schizophrenia
     Dosage: UNK
     Route: 065

REACTIONS (1)
  - Sudden cardiac death [Fatal]
